FAERS Safety Report 4326604-2 (Version None)
Quarter: 2004Q1

REPORT INFORMATION
  Report Type: 
  Country: None (occurrence: None)
  Receive Date: 20040330
  Receipt Date: 20040322
  Transmission Date: 20041129
  Serious: Yes (Hospitalization)
  Sender: FDA-Public Use
  Company Number: GB-BRISTOL-MYERS SQUIBB COMPANY-12538815

PATIENT
  Age: 60 Year

DRUGS (5)
  1. TAXOL [Suspect]
     Indication: BREAST CANCER
     Route: 042
     Dates: start: 20040312, end: 20040312
  2. ACETAMINOPHEN [Concomitant]
  3. CODEINE [Concomitant]
  4. DEXAMETHASONE [Concomitant]
  5. LANSOPRAZOLE [Concomitant]

REACTIONS (1)
  - LETHARGY [None]
